FAERS Safety Report 16466505 (Version 10)
Quarter: 2019Q4

REPORT INFORMATION
  Report Type: Spontaneous
  Country: DE (occurrence: DE)
  Receive Date: 20190622
  Receipt Date: 20191016
  Transmission Date: 20200122
  Serious: Yes (Hospitalization, Other)
  Sender: FDA-Public Use
  Company Number: DE-ALLERGAN-1925697US

PATIENT
  Sex: Female
  Weight: 60 kg

DRUGS (16)
  1. FOSFOMYCIN TROMETHAMINE - BP [Suspect]
     Active Substance: FOSFOMYCIN TROMETHAMINE
     Indication: PRODUCT USED FOR UNKNOWN INDICATION
     Dosage: 3000 MG, PRN
  2. CORTISONE [Suspect]
     Active Substance: CORTISONE
     Indication: PRODUCT USED FOR UNKNOWN INDICATION
     Dosage: 100 MG
     Route: 065
  3. VOLON A40 [Suspect]
     Active Substance: TRIAMCINOLONE ACETONIDE
     Dosage: 100 MG, 3 PER MINUTE, ADMINISTERED INTO THE LIQUOR CEREBROSPINALIS
     Route: 065
     Dates: end: 20181004
  4. DOMPERIDONE [Concomitant]
     Active Substance: DOMPERIDONE
     Dosage: 10 MG, QD
  5. OCRELIZUMAB. [Suspect]
     Active Substance: OCRELIZUMAB
     Dosage: 300 MG
     Route: 042
     Dates: start: 20180523
  6. NITROFURANTOIN. [Suspect]
     Active Substance: NITROFURANTOIN
     Indication: PRODUCT USED FOR UNKNOWN INDICATION
     Dosage: UNK
     Route: 065
  7. VOLON A40 [Suspect]
     Active Substance: TRIAMCINOLONE ACETONIDE
     Indication: PRODUCT USED FOR UNKNOWN INDICATION
     Dosage: 70 MG, 3 PER MONTH
     Route: 065
  8. EUSAPRIM [Concomitant]
     Active Substance: SULFAMETHOXAZOLE\TRIMETHOPRIM
     Dosage: 10 ML, QD
  9. FOSFOMYCIN TROMETHAMINE - BP [Suspect]
     Active Substance: FOSFOMYCIN TROMETHAMINE
     Indication: URINARY TRACT INFECTION
     Dosage: 3000 MG
     Route: 065
     Dates: start: 20181111
  10. DEKRISTOL [Concomitant]
     Active Substance: CHOLECALCIFEROL
     Dosage: 20000 IU
  11. SATIVEX [Concomitant]
     Active Substance: NABIXIMOLS
     Dosage: UNK
  12. OCRELIZUMAB. [Suspect]
     Active Substance: OCRELIZUMAB
     Indication: RELAPSING-REMITTING MULTIPLE SCLEROSIS
     Dosage: 600 MG
     Route: 042
     Dates: start: 20181212
  13. OVESTIN [Concomitant]
     Active Substance: ESTRIOL
  14. INFLUENZA VACCINE [Suspect]
     Active Substance: INFLUENZA VIRUS VACCINE
     Indication: PRODUCT USED FOR UNKNOWN INDICATION
     Dosage: UNK
     Route: 065
     Dates: start: 20181018, end: 20181018
  15. RAMIPRIL. [Concomitant]
     Active Substance: RAMIPRIL
     Dosage: 2.5 MG
  16. PARACETAMOL [Concomitant]
     Active Substance: ACETAMINOPHEN

REACTIONS (24)
  - Periorbital swelling [Unknown]
  - Abdominal pain upper [Unknown]
  - Pharyngeal disorder [Recovered/Resolved]
  - Fatigue [Not Recovered/Not Resolved]
  - Vaginal discharge [Not Recovered/Not Resolved]
  - Herpes virus infection [Recovered/Resolved]
  - Blood pressure increased [Recovered/Resolved]
  - Rhinorrhoea [Recovered/Resolved]
  - Vulvovaginal mycotic infection [Recovering/Resolving]
  - Tongue coated [Recovered/Resolved]
  - Fall [Unknown]
  - Drug hypersensitivity [Recovered/Resolved]
  - Cystitis [Unknown]
  - Osteoporosis [Not Recovered/Not Resolved]
  - Back pain [Not Recovered/Not Resolved]
  - Infection susceptibility increased [Not Recovered/Not Resolved]
  - Migraine [Recovering/Resolving]
  - Contusion [Not Recovered/Not Resolved]
  - Urinary tract infection [Recovered/Resolved]
  - Fungal infection [Recovered/Resolved]
  - Immune system disorder [Not Recovered/Not Resolved]
  - Pseudomonas infection [Recovered/Resolved]
  - Listless [Not Recovered/Not Resolved]
  - Arthropod bite [Recovered/Resolved]

NARRATIVE: CASE EVENT DATE: 20181212
